FAERS Safety Report 23048451 (Version 1)
Quarter: 2023Q4

REPORT INFORMATION
  Report Type: Spontaneous
  Country: US (occurrence: US)
  Receive Date: 20231010
  Receipt Date: 20231010
  Transmission Date: 20240109
  Serious: No
  Sender: FDA-Public Use
  Company Number: US-BRISTOL-MYERS SQUIBB COMPANY-2023-141932

PATIENT
  Age: 88 Year
  Sex: Female
  Weight: 52.16 kg

DRUGS (3)
  1. ELIQUIS [Suspect]
     Active Substance: APIXABAN
     Indication: Atrial fibrillation
     Route: 048
     Dates: start: 202103
  2. ELIQUIS [Suspect]
     Active Substance: APIXABAN
     Route: 048
  3. DULOXETINE [Concomitant]
     Active Substance: DULOXETINE
     Indication: Pain

REACTIONS (2)
  - Haemoglobin decreased [Unknown]
  - Epistaxis [Recovering/Resolving]
